FAERS Safety Report 12118815 (Version 1)
Quarter: 2016Q1

REPORT INFORMATION
  Report Type: Spontaneous
  Country: None (occurrence: None)
  Receive Date: 20160225
  Receipt Date: 20160225
  Transmission Date: 20160526
  Serious: No
  Sender: FDA-Public Use
  Company Number: None

PATIENT

DRUGS (1)
  1. ALPHAGAN P 1.5% GENERIC [Suspect]
     Active Substance: BRIMONIDINE TARTRATE

REACTIONS (1)
  - Drug hypersensitivity [None]
